FAERS Safety Report 15049835 (Version 1)
Quarter: 2018Q2

REPORT INFORMATION
  Report Type: Spontaneous
  Country: US (occurrence: US)
  Receive Date: 20180622
  Receipt Date: 20180622
  Transmission Date: 20180711
  Serious: No
  Sender: FDA-Public Use
  Company Number: US-MYLANLABS-2018M1035850

PATIENT
  Age: 47 Year
  Sex: Female
  Weight: 68 kg

DRUGS (1)
  1. ESTRADIOL TRANSDERMAL SYSTEM [Suspect]
     Active Substance: ESTRADIOL
     Indication: MENOPAUSE
     Dosage: 0.05 DF, BIWEEKLY
     Route: 062
     Dates: start: 20180316, end: 20180403

REACTIONS (5)
  - Breast pain [Recovered/Resolved]
  - Drug hypersensitivity [Unknown]
  - Nipple exudate bloody [Recovered/Resolved]
  - Oedema peripheral [Recovered/Resolved]
  - Breast haematoma [Unknown]

NARRATIVE: CASE EVENT DATE: 20180317
